FAERS Safety Report 16092239 (Version 2)
Quarter: 2019Q2

REPORT INFORMATION
  Report Type: Report from Study
  Country: US (occurrence: US)
  Receive Date: 20190319
  Receipt Date: 20190409
  Transmission Date: 20190711
  Serious: Yes (Other)
  Sender: FDA-Public Use
  Company Number: US-SHIRE-US201908386

PATIENT
  Age: 46 Year
  Sex: Female

DRUGS (5)
  1. VENTOLIN [Concomitant]
     Active Substance: ALBUTEROL SULFATE
     Indication: PRODUCT USED FOR UNKNOWN INDICATION
  2. TAKHZYRO [Suspect]
     Active Substance: LANADELUMAB-FLYO
     Indication: IMMUNE SYSTEM DISORDER
     Dosage: 300 MILLIGRAM, 1X/2WKS
     Route: 058
     Dates: start: 20180927
  3. TAKHZYRO [Suspect]
     Active Substance: LANADELUMAB-FLYO
     Indication: HEREDITARY ANGIOEDEMA
     Dosage: UNK
     Route: 065
     Dates: start: 20180926
  4. FIRAZYR [Suspect]
     Active Substance: ICATIBANT ACETATE
     Indication: HEREDITARY ANGIOEDEMA
     Dosage: 30 MG/3 ML
     Route: 058
     Dates: start: 20180124
  5. ALBUTEROL SULFATE. [Concomitant]
     Active Substance: ALBUTEROL SULFATE
     Indication: PRODUCT USED FOR UNKNOWN INDICATION

REACTIONS (4)
  - Rib fracture [Recovering/Resolving]
  - Pneumonia [Recovered/Resolved]
  - Fall [Unknown]
  - Hereditary angioedema [Unknown]

NARRATIVE: CASE EVENT DATE: 20190301
